FAERS Safety Report 24684103 (Version 1)
Quarter: 2024Q4

REPORT INFORMATION
  Report Type: Spontaneous
  Country: US (occurrence: US)
  Receive Date: 20241202
  Receipt Date: 20241202
  Transmission Date: 20250115
  Serious: No
  Sender: CIPLA
  Company Number: US-CIPLA LTD.-2024US06124

PATIENT

DRUGS (2)
  1. GABAPENTIN [Suspect]
     Active Substance: GABAPENTIN
     Indication: Pain
     Dosage: UNK
     Route: 065
     Dates: start: 202406
  2. GABAPENTIN [Suspect]
     Active Substance: GABAPENTIN
     Indication: Stenosis

REACTIONS (1)
  - Off label use [Unknown]

NARRATIVE: CASE EVENT DATE: 20240601
